FAERS Safety Report 18939962 (Version 2)
Quarter: 2021Q1

REPORT INFORMATION
  Report Type: Spontaneous
  Country: US (occurrence: US)
  Receive Date: 20210224
  Receipt Date: 20210318
  Transmission Date: 20210420
  Serious: No
  Sender: FDA-Public Use
  Company Number: US-AMAG PHARMACEUTICALS, INC.-AMAG202100527

PATIENT
  Age: 28 Year
  Sex: Female

DRUGS (4)
  1. PRENATAL VITAMIN [Concomitant]
     Active Substance: VITAMINS
     Dosage: 28?0.8 MG
     Dates: start: 20201006
  2. ASPRIN [Concomitant]
     Active Substance: ASPIRIN
     Dates: start: 20201117
  3. MAKENA [Suspect]
     Active Substance: HYDROXYPROGESTERONE CAPROATE
     Indication: PREMATURE DELIVERY
     Route: 030
     Dates: start: 20201117
  4. ZOFRAN [Concomitant]
     Active Substance: ONDANSETRON HYDROCHLORIDE
     Dates: start: 20201027

REACTIONS (2)
  - Burning sensation [Recovered/Resolved]
  - Pain in extremity [Recovered/Resolved]

NARRATIVE: CASE EVENT DATE: 20210209
